FAERS Safety Report 7940223-8 (Version None)
Quarter: 2011Q4

REPORT INFORMATION
  Report Type: 
  Country: None (occurrence: None)
  Receive Date: 20111126
  Receipt Date: 20110914
  Transmission Date: 20120403
  Serious: No
  Sender: FDA-Public Use
  Company Number: US-BAYER-2011-090692

PATIENT
  Age: 82 Year
  Sex: Female
  Weight: 91 kg

DRUGS (5)
  1. ALEVE (CAPLET) [Suspect]
     Indication: BACK PAIN
     Dosage: 1
     Dates: start: 20110913, end: 20110914
  2. ENALAPRIL MALEATE [Concomitant]
  3. ATENOLOL [Concomitant]
  4. ASPIRIN [Concomitant]
     Dosage: 81 MG, QD
  5. ASPIRIN [Concomitant]
     Dosage: 325 MG, ONCE
     Route: 048

REACTIONS (1)
  - DRUG INEFFECTIVE [None]
